FAERS Safety Report 5085319-6 (Version None)
Quarter: 2006Q3

REPORT INFORMATION
  Report Type: 
  Country: None (occurrence: None)
  Receive Date: 20060817
  Receipt Date: 20060628
  Transmission Date: 20061208
  Serious: Yes (Other)
  Sender: FDA-Public Use
  Company Number: 2006019244

PATIENT
  Sex: Female

DRUGS (1)
  1. BEXTRA [Suspect]
     Indication: ROTATOR CUFF SYNDROME
     Dosage: 40 MG (20 MG, 2 IN 1 D);
     Dates: start: 20021202

REACTIONS (1)
  - STEVENS-JOHNSON SYNDROME [None]
